FAERS Safety Report 26002020 (Version 1)
Quarter: 2025Q4

REPORT INFORMATION
  Report Type: Spontaneous
  Country: CA (occurrence: CA)
  Receive Date: 20251105
  Receipt Date: 20251105
  Transmission Date: 20260118
  Serious: Yes (Other)
  Sender: PFIZER
  Company Number: CA-PFIZER INC-202500205098

PATIENT
  Age: 27 Year
  Sex: Male

DRUGS (5)
  1. CIBINQO [Suspect]
     Active Substance: ABROCITINIB
     Indication: Dermatitis atopic
     Dosage: 200 MG, 1X/DAY
     Route: 048
     Dates: start: 20251002
  2. TRALOKINUMAB [Concomitant]
     Active Substance: TRALOKINUMAB
     Dosage: 1 DF
     Dates: start: 202311
  3. BRYHALI [Concomitant]
     Active Substance: HALOBETASOL PROPIONATE
     Dosage: 1 DF
     Dates: start: 20241001
  4. OPZELURA [Concomitant]
     Active Substance: RUXOLITINIB PHOSPHATE
     Dosage: 1 DF
     Dates: start: 20241230
  5. ZORYVE [Concomitant]
     Active Substance: ROFLUMILAST
     Dosage: 1 DF
     Dates: start: 202508

REACTIONS (1)
  - Limb injury [Unknown]

NARRATIVE: CASE EVENT DATE: 20251001
